FAERS Safety Report 6520113-8 (Version None)
Quarter: 2009Q4

REPORT INFORMATION
  Report Type: 
  Country: None (occurrence: None)
  Receive Date: 20091229
  Receipt Date: 20091223
  Transmission Date: 20100525
  Serious: Yes (Other)
  Sender: FDA-Public Use
  Company Number: US-BAXTER-2009BH018433

PATIENT
  Age: 45 Year
  Sex: Female

DRUGS (1)
  1. TISSEEL VH [Suspect]
     Indication: FACE LIFT
     Route: 061
     Dates: start: 20091116, end: 20091116

REACTIONS (4)
  - BACTERIAL INFECTION [None]
  - ERYTHEMA [None]
  - HYPERSENSITIVITY [None]
  - LOCAL SWELLING [None]
